FAERS Safety Report 24062966 (Version 2)
Quarter: 2024Q3

REPORT INFORMATION
  Report Type: Report from Study
  Country: PL (occurrence: PL)
  Receive Date: 20240709
  Receipt Date: 20240711
  Transmission Date: 20241017
  Serious: Yes (Hospitalization)
  Sender: JOHNSON AND JOHNSON
  Company Number: PL-JNJFOC-20240715122

PATIENT
  Age: 71 Year
  Sex: Female

DRUGS (42)
  1. SIMPONI [Suspect]
     Active Substance: GOLIMUMAB
     Indication: Rheumatoid arthritis
     Route: 058
     Dates: start: 20230913, end: 20230913
  2. SIMPONI [Suspect]
     Active Substance: GOLIMUMAB
     Route: 058
     Dates: start: 20231011, end: 20231011
  3. SIMPONI [Suspect]
     Active Substance: GOLIMUMAB
     Route: 058
     Dates: start: 20231108, end: 20231108
  4. SIMPONI [Suspect]
     Active Substance: GOLIMUMAB
     Route: 058
     Dates: start: 20231206, end: 20231206
  5. SIMPONI [Suspect]
     Active Substance: GOLIMUMAB
     Route: 058
     Dates: start: 20240103, end: 20240103
  6. SIMPONI [Suspect]
     Active Substance: GOLIMUMAB
     Route: 058
     Dates: start: 20240131, end: 20240131
  7. SIMPONI [Suspect]
     Active Substance: GOLIMUMAB
     Route: 058
     Dates: start: 20240228, end: 20240228
  8. SIMPONI [Suspect]
     Active Substance: GOLIMUMAB
     Route: 058
     Dates: start: 20240508, end: 20240508
  9. SIMPONI [Suspect]
     Active Substance: GOLIMUMAB
     Route: 058
     Dates: start: 20240529, end: 20240529
  10. METHOTREXATE [Concomitant]
     Active Substance: METHOTREXATE
     Indication: Rheumatoid arthritis
     Route: 048
     Dates: start: 20160909, end: 201703
  11. METHOTREXATE [Concomitant]
     Active Substance: METHOTREXATE
     Route: 058
     Dates: start: 20160909, end: 201703
  12. FOLIC ACID [Concomitant]
     Active Substance: FOLIC ACID
     Indication: Rheumatoid arthritis
     Route: 048
     Dates: start: 20160909, end: 201703
  13. FOLIC ACID [Concomitant]
     Active Substance: FOLIC ACID
     Route: 048
     Dates: start: 20230301
  14. METHYLPREDNISOLONE [Concomitant]
     Active Substance: METHYLPREDNISOLONE
     Indication: Rheumatoid arthritis
     Route: 048
     Dates: start: 20160909
  15. HYDROXYCHLOROQUINE DIPHOSPHATE [Concomitant]
     Active Substance: HYDROXYCHLOROQUINE DIPHOSPHATE
     Indication: Rheumatoid arthritis
     Route: 048
     Dates: start: 20160809, end: 2019
  16. CHOLECALCIFEROL [Concomitant]
     Active Substance: CHOLECALCIFEROL
     Indication: Rheumatoid arthritis
     Route: 048
     Dates: start: 20230301
  17. CALPEROS OSTEO [Concomitant]
     Indication: Rheumatoid arthritis
     Route: 048
     Dates: start: 20230301
  18. DICLOFENAC SODIUM [Concomitant]
     Active Substance: DICLOFENAC\DICLOFENAC SODIUM
     Indication: Rheumatoid arthritis
     Route: 048
     Dates: start: 2020
  19. ACYCLOVIR [Concomitant]
     Active Substance: ACYCLOVIR
     Indication: Oral herpes
     Dates: start: 20231029, end: 20231105
  20. ACYCLOVIR [Concomitant]
     Active Substance: ACYCLOVIR
     Dates: start: 20240323, end: 20240330
  21. YLPIO [Concomitant]
     Indication: Hypertension
     Route: 048
     Dates: start: 20231017
  22. AMOXICILLIN [Concomitant]
     Active Substance: AMOXICILLIN
     Indication: Upper respiratory tract infection
     Route: 048
     Dates: start: 20231213, end: 20231222
  23. CYANOCOBALAMIN [Concomitant]
     Active Substance: CYANOCOBALAMIN
     Indication: Anaemia
     Route: 048
     Dates: start: 20231225
  24. IRON SUCCINYL-PROTEIN COMPLEX [Concomitant]
     Indication: Anaemia
     Route: 048
     Dates: start: 20231225, end: 20240122
  25. IRON SUCCINYL-PROTEIN COMPLEX [Concomitant]
     Route: 048
     Dates: start: 20240201
  26. PANTOPRAZOLE [Concomitant]
     Active Substance: PANTOPRAZOLE
     Indication: Prophylaxis
     Route: 048
     Dates: start: 2013, end: 20240402
  27. AMLODIPINE MESILATE;HYDROCHLOROTHIAZIDE;VALSARTAN [Concomitant]
     Indication: Hypertension
     Route: 048
     Dates: start: 20230821, end: 20230824
  28. HYDROCHLOROTHIAZIDE\VALSARTAN [Concomitant]
     Active Substance: HYDROCHLOROTHIAZIDE\VALSARTAN
     Indication: Hypertension
     Route: 048
     Dates: start: 20230825, end: 20231016
  29. SPIRONOLACTONE [Concomitant]
     Active Substance: SPIRONOLACTONE
     Indication: Hypertension
     Route: 048
     Dates: start: 20231016, end: 20231103
  30. CIPROFLOXACIN [Concomitant]
     Active Substance: CIPROFLOXACIN
     Indication: Urinary tract infection
     Route: 048
     Dates: start: 20231024, end: 20231102
  31. SULFAMETHOXAZOLE\TRIMETHOPRIM [Concomitant]
     Active Substance: SULFAMETHOXAZOLE\TRIMETHOPRIM
     Indication: Urinary tract infection
     Route: 048
     Dates: start: 20231024, end: 20231102
  32. AZD-1222 [Concomitant]
     Active Substance: AZD-1222
     Indication: Prophylaxis
     Dates: start: 2020, end: 2020
  33. SODIUM CHLORIDE [Concomitant]
     Active Substance: SODIUM CHLORIDE
     Indication: Abdominal discomfort
     Route: 042
     Dates: start: 20240402, end: 20240402
  34. ELECTROLYTES NOS [Concomitant]
     Active Substance: ELECTROLYTES NOS
     Indication: Abdominal discomfort
     Route: 042
     Dates: start: 20240402, end: 20240402
  35. CALCIUM CHLORIDE\POTASSIUM CHLORIDE\SODIUM CHLORIDE [Concomitant]
     Active Substance: CALCIUM CHLORIDE\POTASSIUM CHLORIDE\SODIUM CHLORIDE
     Indication: Abdominal discomfort
     Route: 042
     Dates: start: 20240402, end: 20240402
  36. ESOMEPRAZOLE [Concomitant]
     Active Substance: ESOMEPRAZOLE
     Indication: Abdominal discomfort
     Route: 048
     Dates: start: 20240403, end: 20240404
  37. CIPROFLOXACIN HYDROCHLORIDE [Concomitant]
     Active Substance: CIPROFLOXACIN HYDROCHLORIDE
     Indication: Urinary tract infection
     Route: 048
     Dates: start: 20240411, end: 20240416
  38. FURAZOLIDONE [Concomitant]
     Active Substance: FURAZOLIDONE
     Indication: Urinary tract infection
     Route: 048
     Dates: start: 20240411, end: 20240416
  39. TOBREX [Concomitant]
     Active Substance: TOBRAMYCIN
     Indication: Ear inflammation
     Dates: start: 20240624
  40. AMLODIPINUM [Concomitant]
     Route: 048
     Dates: start: 20240618, end: 20240624
  41. ENERGAMMA [Concomitant]
     Indication: Anaemia
     Route: 048
     Dates: start: 20231225
  42. FEROPLEX [Concomitant]
     Indication: Anaemia
     Dates: start: 20240201

REACTIONS (1)
  - Pneumonia [Recovered/Resolved]

NARRATIVE: CASE EVENT DATE: 20240614
